FAERS Safety Report 7174398-8 (Version None)
Quarter: 2010Q4

REPORT INFORMATION
  Report Type: 
  Country: None (occurrence: None)
  Receive Date: 20101215
  Receipt Date: 20101215
  Transmission Date: 20110411
  Serious: No
  Sender: FDA-Public Use
  Company Number: None

PATIENT
  Age: 77 Year
  Sex: Male
  Weight: 77.1115 kg

DRUGS (2)
  1. TRAMADOL HYDROCHLORIDE AND ACETAMINOPHEN [Suspect]
     Indication: PAIN
     Dosage: 1 TABLET EVERY 8 HRS MOUTH
     Route: 048
     Dates: start: 20101124
  2. PROZAC [Concomitant]

REACTIONS (4)
  - AGITATION [None]
  - HEADACHE [None]
  - INSOMNIA [None]
  - NAUSEA [None]
